FAERS Safety Report 6577649-3 (Version None)
Quarter: 2010Q1

REPORT INFORMATION
  Report Type: 
  Country: None (occurrence: None)
  Receive Date: 20100211
  Receipt Date: 20100202
  Transmission Date: 20100710
  Serious: Yes (Other)
  Sender: FDA-Public Use
  Company Number: PHHY2010BR06267

PATIENT
  Age: 15 Year
  Sex: Male

DRUGS (3)
  1. TRILEPTAL [Suspect]
     Indication: CONVULSION
     Dosage: 300 MG, (02 TABLETS IN MORNING AND 2.5 TABLET AT NIGHT)
     Route: 048
     Dates: start: 20070101
  2. TRILEPTAL [Suspect]
     Dosage: 300 MG, (2 TABLETS IN THE MORNING AND 3 TABLETS AT NIGHT)
     Route: 048
     Dates: start: 20090301
  3. FLUOXETINE HYDROCHLORIDE [Concomitant]
     Indication: NERVOUSNESS
     Dosage: 20 MG, 15 DROPS DAILY
     Dates: start: 20080101

REACTIONS (6)
  - ABDOMINAL PAIN [None]
  - ANTICONVULSANT DRUG LEVEL BELOW THERAPEUTIC [None]
  - ARTHROPATHY [None]
  - DYSSTASIA [None]
  - INTESTINAL FUNCTIONAL DISORDER [None]
  - PETIT MAL EPILEPSY [None]
